FAERS Safety Report 14440040 (Version 1)
Quarter: 2018Q1

REPORT INFORMATION
  Report Type: Spontaneous
  Country: US (occurrence: US)
  Receive Date: 20180125
  Receipt Date: 20180125
  Transmission Date: 20180509
  Serious: No
  Sender: FDA-Public Use
  Company Number: US-ABBVIE-17K-163-1955987-00

PATIENT
  Sex: Female

DRUGS (8)
  1. XELJANZ [Suspect]
     Active Substance: TOFACITINIB CITRATE
     Indication: PRODUCT USED FOR UNKNOWN INDICATION
     Route: 048
  2. LO LOESTRIN FE [Concomitant]
     Active Substance: ETHINYL ESTRADIOL\NORETHINDRONE ACETATE
     Indication: PRODUCT USED FOR UNKNOWN INDICATION
     Route: 048
  3. VITAMIN D [Concomitant]
     Active Substance: CHOLECALCIFEROL
     Indication: PRODUCT USED FOR UNKNOWN INDICATION
     Route: 048
  4. DESONIDE. [Concomitant]
     Active Substance: DESONIDE
     Indication: PRURITUS
  5. METFORMIN HCL [Concomitant]
     Active Substance: METFORMIN HYDROCHLORIDE
     Indication: PRODUCT USED FOR UNKNOWN INDICATION
  6. DICLOFENAC SODIUM. [Concomitant]
     Active Substance: DICLOFENAC SODIUM
     Indication: PRODUCT USED FOR UNKNOWN INDICATION
     Route: 048
  7. HUMIRA [Suspect]
     Active Substance: ADALIMUMAB
     Indication: RHEUMATOID ARTHRITIS
     Route: 058
  8. PENLAC [Concomitant]
     Active Substance: CICLOPIROX
     Indication: APPLICATION SITE DERMATITIS

REACTIONS (15)
  - Pain in extremity [Unknown]
  - Hypertension [Unknown]
  - Haematuria [Unknown]
  - Rheumatoid arthritis [Unknown]
  - Hepatic enzyme abnormal [Unknown]
  - Hyperthyroidism [Unknown]
  - Insulin resistance [Unknown]
  - Red blood cell count increased [Unknown]
  - Basedow^s disease [Unknown]
  - Glucose tolerance impaired [Unknown]
  - Obesity [Unknown]
  - Menstrual disorder [Unknown]
  - Polycystic ovaries [Unknown]
  - Drug ineffective [Unknown]
  - Liver disorder [Unknown]
